FAERS Safety Report 10049634 (Version 1)
Quarter: 2014Q2

REPORT INFORMATION
  Report Type: Spontaneous
  Country: GB (occurrence: GB)
  Receive Date: 20140401
  Receipt Date: 20140401
  Transmission Date: 20141212
  Serious: Yes (Hospitalization)
  Sender: FDA-Public Use
  Company Number: GB-TEVA-471835ISR

PATIENT
  Age: 75 Year
  Sex: Female

DRUGS (11)
  1. RAMIPRIL [Suspect]
     Indication: CARDIAC FAILURE
     Dosage: 5 MILLIGRAM DAILY;
     Route: 048
     Dates: end: 20140217
  2. SPIRONOLACTONE [Suspect]
     Indication: CARDIAC FAILURE
     Dosage: 50 MILLIGRAM DAILY;
     Route: 048
     Dates: end: 20140217
  3. ATENOLOL [Concomitant]
  4. ATORVASTATIN [Concomitant]
  5. CANDESARTAN [Concomitant]
  6. CLOPIDOGREL [Concomitant]
  7. FERROUS FUMARATE [Concomitant]
  8. GLYCERYL TRINITRATE [Concomitant]
  9. NICORANDIL [Concomitant]
  10. SALBUTAMOL [Concomitant]
  11. TIOTROPIUM BROMIDE [Concomitant]

REACTIONS (2)
  - Hyperkalaemia [Recovered/Resolved]
  - Hypercalcaemia [Unknown]
